FAERS Safety Report 22861163 (Version 9)
Quarter: 2025Q3

REPORT INFORMATION
  Report Type: Report from Study
  Country: JP (occurrence: JP)
  Receive Date: 20230824
  Receipt Date: 20250712
  Transmission Date: 20251021
  Serious: Yes (Life-Threatening, Hospitalization, Other)
  Sender: AMGEN
  Company Number: JP-HORIZON THERAPEUTICS-HZN-2023-001299

PATIENT
  Age: 73 Year
  Sex: Female
  Weight: 47 kg

DRUGS (13)
  1. INEBILIZUMAB [Suspect]
     Active Substance: INEBILIZUMAB
     Indication: Neuromyelitis optica spectrum disorder
     Dosage: 300 MILLIGRAM, QD
     Route: 042
     Dates: start: 20211201
  2. INEBILIZUMAB [Suspect]
     Active Substance: INEBILIZUMAB
     Dosage: 300 MILLIGRAM, QD
     Route: 042
     Dates: start: 20211216
  3. INEBILIZUMAB [Suspect]
     Active Substance: INEBILIZUMAB
     Dosage: 300 MILLIGRAM, QD
     Route: 042
     Dates: start: 20220608
  4. INEBILIZUMAB [Suspect]
     Active Substance: INEBILIZUMAB
     Dosage: 300 MILLIGRAM, QD
     Route: 042
     Dates: start: 20221215
  5. INEBILIZUMAB [Suspect]
     Active Substance: INEBILIZUMAB
     Dosage: 300 MILLIGRAM, QD
     Route: 042
     Dates: start: 20231221
  6. INEBILIZUMAB [Suspect]
     Active Substance: INEBILIZUMAB
     Dosage: 300 MILLIGRAM, QD
     Route: 042
     Dates: start: 20240809
  7. PREDNISOLONE [Concomitant]
     Active Substance: PREDNISOLONE
     Indication: Neuromyelitis optica spectrum disorder
     Route: 065
  8. ELDECALCITOL [Concomitant]
     Active Substance: ELDECALCITOL
     Indication: Prophylaxis
     Route: 065
  9. FAMOTIDINE [Concomitant]
     Active Substance: FAMOTIDINE
     Indication: Prophylaxis
     Route: 065
  10. OMEPRAZOLE [Concomitant]
     Active Substance: OMEPRAZOLE
     Indication: Prophylaxis
     Route: 065
  11. RISEDRONATE SODIUM [Concomitant]
     Active Substance: RISEDRONATE SODIUM
     Indication: Prophylaxis
     Route: 065
  12. Choreito [Concomitant]
     Indication: Pollakiuria
     Route: 065
  13. ENSPRYNG [Concomitant]
     Active Substance: SATRALIZUMAB-MWGE
     Indication: Neuromyelitis optica spectrum disorder
     Route: 065
     Dates: end: 20211104

REACTIONS (7)
  - Acute respiratory distress syndrome [Recovering/Resolving]
  - Pneumonia pneumococcal [Recovering/Resolving]
  - COVID-19 [Recovering/Resolving]
  - COVID-19 [Unknown]
  - Oxygen therapy [Recovered/Resolved]
  - Off label use [Unknown]
  - Off label use [Unknown]

NARRATIVE: CASE EVENT DATE: 20230204
